FAERS Safety Report 9697009 (Version 1)
Quarter: 2013Q4

REPORT INFORMATION
  Report Type: Spontaneous
  Country: US (occurrence: US)
  Receive Date: 20131119
  Receipt Date: 20131119
  Transmission Date: 20140711
  Serious: Yes (Other)
  Sender: FDA-Public Use
  Company Number: US-JNJFOC-20131103853

PATIENT
  Sex: 0

DRUGS (1)
  1. VISINE ORIGINAL [Suspect]
     Indication: PRODUCT USED FOR UNKNOWN INDICATION
     Route: 047

REACTIONS (5)
  - Drug dependence [Unknown]
  - Capillary disorder [Unknown]
  - Visual impairment [Unknown]
  - Product name confusion [Unknown]
  - Inappropriate schedule of drug administration [Unknown]
